FAERS Safety Report 20789025 (Version 9)
Quarter: 2025Q3

REPORT INFORMATION
  Report Type: Spontaneous
  Country: US (occurrence: US)
  Receive Date: 20220505
  Receipt Date: 20250913
  Transmission Date: 20251020
  Serious: No
  Sender: AMGEN
  Company Number: US-AMGEN-USASP2022076767

PATIENT
  Sex: Male

DRUGS (18)
  1. OTEZLA [Suspect]
     Active Substance: APREMILAST
     Indication: Behcet^s syndrome
     Dosage: 30 MILLIGRAM, BID
     Route: 048
     Dates: start: 20211118
  2. OTEZLA [Suspect]
     Active Substance: APREMILAST
     Indication: Psoriatic arthropathy
  3. CELECOXIB [Concomitant]
     Active Substance: CELECOXIB
  4. DICLOFENAC [Concomitant]
     Active Substance: DICLOFENAC
  5. LISINOPRIL [Concomitant]
     Active Substance: LISINOPRIL
  6. MONTELUKAST SODIUM [Concomitant]
     Active Substance: MONTELUKAST SODIUM
  7. ROSUVASTATIN [Concomitant]
     Active Substance: ROSUVASTATIN
  8. TESTOSTERONE [Concomitant]
     Active Substance: TESTOSTERONE
  9. ALBUTEROL SULFATE [Concomitant]
     Active Substance: ALBUTEROL SULFATE
  10. ASPIRIN [Concomitant]
     Active Substance: ASPIRIN
  11. AZITHROMYCIN [Concomitant]
     Active Substance: AZITHROMYCIN
  12. HYDROXYUREA [Concomitant]
     Active Substance: HYDROXYUREA
  13. PREDNISONE [Concomitant]
     Active Substance: PREDNISONE
  14. CODEINE\PROMETHAZINE [Concomitant]
     Active Substance: CODEINE\PROMETHAZINE
  15. BETAMETHASONE VALERATE [Concomitant]
     Active Substance: BETAMETHASONE VALERATE
  16. FUROSEMIDE [Concomitant]
     Active Substance: FUROSEMIDE
  17. JAKAFI [Concomitant]
     Active Substance: RUXOLITINIB
  18. METFORMIN [Concomitant]
     Active Substance: METFORMIN HYDROCHLORIDE

REACTIONS (8)
  - Therapy non-responder [Not Recovered/Not Resolved]
  - Loss of personal independence in daily activities [Not Recovered/Not Resolved]
  - Alopecia [Unknown]
  - Product dose omission issue [Unknown]
  - Peripheral swelling [Unknown]
  - Pain [Not Recovered/Not Resolved]
  - Fatigue [Unknown]
  - Arthralgia [Unknown]
